FAERS Safety Report 9131474 (Version 1)
Quarter: 2013Q1

REPORT INFORMATION
  Report Type: Report from Study
  Country: US (occurrence: US)
  Receive Date: 20130301
  Receipt Date: 20130301
  Transmission Date: 20140127
  Serious: No
  Sender: FDA-Public Use
  Company Number: US-MYLANLABS-2012S1006146

PATIENT
  Age: 33 Year
  Sex: Male

DRUGS (4)
  1. AMNESTEEM CAPSULES [Suspect]
     Indication: ACNE
     Dates: start: 20120201, end: 20120316
  2. AMNESTEEM CAPSULES [Suspect]
     Indication: HIDRADENITIS
     Dates: start: 20120201, end: 20120316
  3. AMNESTEEM CAPSULES [Suspect]
     Indication: ACNE
     Dates: start: 20120201, end: 20120316
  4. AMNESTEEM CAPSULES [Suspect]
     Indication: HIDRADENITIS
     Dates: start: 20120201, end: 20120316

REACTIONS (4)
  - Mood swings [Recovered/Resolved]
  - Eczema [Recovered/Resolved]
  - Dyspepsia [Recovered/Resolved]
  - Cheilitis [Recovered/Resolved]
